FAERS Safety Report 15402780 (Version 1)
Quarter: 2018Q3

REPORT INFORMATION
  Report Type: Spontaneous
  Country: US (occurrence: US)
  Receive Date: 20180917
  Receipt Date: 20180917
  Transmission Date: 20181010
  Serious: Yes (Death)
  Sender: FDA-Public Use
  Company Number: None

PATIENT
  Age: 72 Year
  Sex: Male
  Weight: 86.85 kg

DRUGS (14)
  1. TEMOZOLOMIDE. [Suspect]
     Active Substance: TEMOZOLOMIDE
     Indication: HEPATIC CANCER
     Dosage: ?          OTHER FREQUENCY:QDX21D THEN 7 OFF;?
     Route: 048
     Dates: start: 20180605, end: 20180910
  2. OMEPRAZOLE. [Concomitant]
     Active Substance: OMEPRAZOLE
  3. MULTIVITAMIN [Concomitant]
     Active Substance: VITAMINS
  4. VITAMIN D [Concomitant]
     Active Substance: CHOLECALCIFEROL
  5. CARVEIDILOL [Concomitant]
  6. TRULICITY [Concomitant]
     Active Substance: DULAGLUTIDE
  7. CYCLOBENZAPRINE. [Concomitant]
     Active Substance: CYCLOBENZAPRINE
  8. ASA [Concomitant]
     Active Substance: ASPIRIN
  9. PRAVASTATIN. [Concomitant]
     Active Substance: PRAVASTATIN
  10. TYLENOL WITH CODEINE [Concomitant]
     Active Substance: ACETAMINOPHEN\CODEINE PHOSPHATE
  11. LASIX [Concomitant]
     Active Substance: FUROSEMIDE
  12. TEMOZOLOMIDE. [Suspect]
     Active Substance: TEMOZOLOMIDE
     Indication: LUNG NEOPLASM MALIGNANT
     Dosage: ?          OTHER FREQUENCY:QDX21D THEN 7 OFF;?
     Route: 048
     Dates: start: 20180605, end: 20180910
  13. COENZYME Q10 [Concomitant]
     Active Substance: UBIDECARENONE
  14. LISINOPRIL. [Concomitant]
     Active Substance: LISINOPRIL

REACTIONS (1)
  - Death [None]

NARRATIVE: CASE EVENT DATE: 20180910
